FAERS Safety Report 16389554 (Version 1)
Quarter: 2019Q3

REPORT INFORMATION
  Report Type: Spontaneous
  Country: US (occurrence: US)
  Receive Date: 20190603
  Receipt Date: 20190603
  Transmission Date: 20191004
  Serious: Yes (Other)
  Sender: FDA-Public Use
  Company Number: None

PATIENT
  Age: 59 Year
  Sex: Female
  Weight: 108 kg

DRUGS (14)
  1. CALCIUM 500 + D3 [Concomitant]
  2. VITAMIN B12 [Concomitant]
     Active Substance: CYANOCOBALAMIN
  3. GABAPENTIN. [Concomitant]
     Active Substance: GABAPENTIN
  4. ASPIRIN LOW DOSE [Concomitant]
     Active Substance: ASPIRIN
  5. EXEMESTANE. [Concomitant]
     Active Substance: EXEMESTANE
  6. GLYBURIDE-METFORMIN [Concomitant]
  7. FISH OIL [Concomitant]
     Active Substance: FISH OIL
  8. HYDRALAZINE HCL [Concomitant]
     Active Substance: HYDRALAZINE HYDROCHLORIDE
  9. QUINAPRIL. [Concomitant]
     Active Substance: QUINAPRIL
  10. BASAGLAR [Concomitant]
     Active Substance: INSULIN GLARGINE
  11. AMLODIPINE BESYLATE. [Concomitant]
     Active Substance: AMLODIPINE BESYLATE
  12. PRAVASTATIN SODIUM. [Concomitant]
     Active Substance: PRAVASTATIN SODIUM
  13. NOVOLOG [Concomitant]
     Active Substance: INSULIN ASPART
  14. CAPECITABINE. [Suspect]
     Active Substance: CAPECITABINE
     Indication: SKIN CANCER
     Route: 048
     Dates: start: 20190423

REACTIONS (3)
  - Tongue discolouration [None]
  - Skin discolouration [None]
  - Skin hyperpigmentation [None]
